FAERS Safety Report 19580060 (Version 1)
Quarter: 2021Q3

REPORT INFORMATION
  Report Type: Report from Study
  Country: FR (occurrence: FR)
  Receive Date: 20210720
  Receipt Date: 20210720
  Transmission Date: 20211014
  Serious: Yes (Life-Threatening, Hospitalization, Other)
  Sender: FDA-Public Use
  Company Number: FR-AUROBINDO-AUR-APL-2021-030329

PATIENT
  Age: 83 Year
  Sex: Female

DRUGS (4)
  1. IRBESARTAN+ HYDROCHLOROTHIAZIDE [Suspect]
     Active Substance: HYDROCHLOROTHIAZIDE\IRBESARTAN
     Indication: PRODUCT USED FOR UNKNOWN INDICATION
     Dosage: 1 DOSAGE FORM, FOUR TIMES/DAY
     Route: 065
  2. IRBESARTAN+ HYDROCHLOROTHIAZIDE [Suspect]
     Active Substance: HYDROCHLOROTHIAZIDE\IRBESARTAN
     Dosage: 300/25 MG, FOUR TIMES/DAY
     Route: 065
  3. ASPIRIN. [Suspect]
     Active Substance: ASPIRIN
     Indication: PRODUCT USED FOR UNKNOWN INDICATION
     Dosage: 75 MILLIGRAM, FOUR TIMES/DAY
     Route: 065
  4. METFORMIN [Suspect]
     Active Substance: METFORMIN HYDROCHLORIDE
     Indication: DIABETES MELLITUS
     Dosage: 1000 MILLIGRAM, 3 TIMES A DAY
     Route: 065

REACTIONS (12)
  - Dehydration [Unknown]
  - Diarrhoea [Unknown]
  - Hypoxia [Unknown]
  - Blood potassium increased [Unknown]
  - Acute respiratory distress syndrome [Unknown]
  - Acute kidney injury [Unknown]
  - Dyspnoea [Unknown]
  - Lactic acidosis [Unknown]
  - Pneumonia [Unknown]
  - Oliguria [Unknown]
  - Disorientation [Unknown]
  - Confusional state [Unknown]
